FAERS Safety Report 13028303 (Version 3)
Quarter: 2017Q1

REPORT INFORMATION
  Report Type: Report from Study
  Country: US (occurrence: US)
  Receive Date: 20161214
  Receipt Date: 20170228
  Transmission Date: 20170428
  Serious: Yes (Hospitalization)
  Sender: FDA-Public Use
  Company Number: US-BAYER-2016-231771

PATIENT
  Age: 68 Year
  Sex: Male

DRUGS (1)
  1. STIVARGA [Suspect]
     Active Substance: REGORAFENIB
     Indication: COLON CANCER
     Dosage: 160 MG DAILY DOSE
     Route: 048
     Dates: start: 20161117, end: 20161125

REACTIONS (5)
  - Malaise [Not Recovered/Not Resolved]
  - Fatigue [None]
  - Frequent bowel movements [None]
  - Nausea [None]
  - Diarrhoea [Not Recovered/Not Resolved]

NARRATIVE: CASE EVENT DATE: 20161125
